FAERS Safety Report 7662072-0 (Version None)
Quarter: 2011Q3

REPORT INFORMATION
  Report Type: 
  Country: None (occurrence: None)
  Receive Date: 20110805
  Receipt Date: 20101208
  Transmission Date: 20111222
  Serious: No
  Sender: FDA-Public Use
  Company Number: US-ABBOTT-10P-163-0690411-00

PATIENT
  Sex: Male
  Weight: 107.14 kg

DRUGS (9)
  1. METOPROLOL TARTRATE [Concomitant]
     Indication: HYPERTENSION
  2. CEPHALEXIN [Concomitant]
     Indication: DERMATITIS CONTACT
  3. FERROUS SULFATE TAB [Concomitant]
     Indication: PRODUCT USED FOR UNKNOWN INDICATION
  4. MULTI-VITAMIN [Concomitant]
     Indication: PRODUCT USED FOR UNKNOWN INDICATION
  5. NIASPAN [Suspect]
     Indication: BLOOD CHOLESTEROL INCREASED
  6. SIMVASTATIN [Concomitant]
     Indication: BLOOD CHOLESTEROL INCREASED
  7. ASPIRIN [Concomitant]
     Indication: PRODUCT USED FOR UNKNOWN INDICATION
  8. LISINOPRIL [Concomitant]
     Indication: PRODUCT USED FOR UNKNOWN INDICATION
  9. KENALOG [Concomitant]
     Indication: DERMATITIS CONTACT

REACTIONS (1)
  - FLUSHING [None]
